FAERS Safety Report 9383463 (Version 2)
Quarter: 2013Q3

REPORT INFORMATION
  Report Type: Spontaneous
  Country: US (occurrence: US)
  Receive Date: 20130704
  Receipt Date: 20130724
  Transmission Date: 20140515
  Serious: Yes (Disabling, Other)
  Sender: FDA-Public Use
  Company Number: US-PFIZER INC-2013196560

PATIENT
  Age: 61 Year
  Sex: Male
  Weight: 147 kg

DRUGS (5)
  1. LYRICA [Suspect]
     Indication: DIABETIC NEUROPATHY
     Dosage: 100 MG, 2X/DAY
     Route: 048
  2. CHLORTHALIDONE [Suspect]
     Indication: BLOOD PRESSURE ABNORMAL
     Dosage: 25 MG, 1X/DAY
     Route: 048
  3. GABAPENTIN [Suspect]
     Indication: DIABETIC NEUROPATHY
     Dosage: UNK
  4. CRESTOR [Suspect]
     Indication: CARDIAC DISORDER
     Dosage: 20 MG, 1X/DAY
     Route: 048
  5. PROAIR HFA [Suspect]
     Indication: DYSPNOEA
     Dosage: 90 UG, 4X/DAY

REACTIONS (5)
  - Spinal fracture [Unknown]
  - Peripheral nerve injury [Unknown]
  - Back disorder [Unknown]
  - Drug ineffective [Unknown]
  - Abdominal discomfort [Unknown]
